FAERS Safety Report 9920797 (Version 1)
Quarter: 2014Q1

REPORT INFORMATION
  Report Type: Spontaneous
  Country: GB (occurrence: GB)
  Receive Date: 20140224
  Receipt Date: 20140224
  Transmission Date: 20141002
  Serious: Yes (Hospitalization)
  Sender: FDA-Public Use
  Company Number: GB-MYLANLABS-2014S1003142

PATIENT
  Age: 82 Year
  Sex: Female

DRUGS (19)
  1. AMOXICILLIN [Suspect]
     Indication: LOWER RESPIRATORY TRACT INFECTION
     Route: 048
     Dates: start: 20131023
  2. CLARITHROMYCIN [Suspect]
     Indication: LOWER RESPIRATORY TRACT INFECTION
     Route: 048
     Dates: start: 20131030
  3. PREDNISOLONE [Suspect]
     Indication: LOWER RESPIRATORY TRACT INFECTION
     Route: 048
     Dates: start: 20131023
  4. WARFARIN [Suspect]
     Indication: DEEP VEIN THROMBOSIS
     Route: 048
     Dates: start: 19740401
  5. ATORVASTATIN [Concomitant]
     Dosage: WHEN CLARITHROMYCIN WAS GIVEN ATORVASTATIN WAS TEMPORARILY STOPPED.
     Route: 048
  6. PROCHLORPERAZINE MALEATE [Concomitant]
     Route: 048
  7. METFORMIN HYDROCHLORIDE [Concomitant]
     Route: 048
  8. QUININE SULFATE [Concomitant]
     Dosage: USE AS DIRECTED
  9. CO-AMILOFRUSE [Concomitant]
     Dosage: 10/80. EACH MORNING.
     Route: 048
  10. OMEPRAZOLE [Concomitant]
     Route: 048
  11. TAMOXIFEN [Concomitant]
     Route: 048
  12. PARACETAMOL [Concomitant]
     Dosage: TAKE 1 OR 2 FOUR TIMES DAILY
     Route: 048
  13. MONTELUKAST SODIUM [Concomitant]
     Dosage: AT NIGHT
     Route: 048
  14. ALLOPURINOL [Concomitant]
     Route: 048
  15. AMITRIPTYLINE HYDROCHLORIDE [Concomitant]
     Dosage: AT NIGHT
     Route: 048
  16. CETRABEN /01007601/ [Concomitant]
     Dosage: APPLY 2-3 TIMES DAILY
     Route: 061
  17. SYMBICORT [Concomitant]
     Route: 048
  18. ORAMORPH [Concomitant]
     Dosage: 1 SPOON (300ML) EVERY 4-5 HOURS.
     Route: 048
  19. BRICANYL [Concomitant]
     Route: 048

REACTIONS (2)
  - Drug interaction [Unknown]
  - International normalised ratio increased [Recovered/Resolved]
